FAERS Safety Report 10032978 (Version 1)
Quarter: 2014Q1

REPORT INFORMATION
  Report Type: Spontaneous
  Country: JP (occurrence: JP)
  Receive Date: 20140324
  Receipt Date: 20140324
  Transmission Date: 20141002
  Serious: Yes (Death)
  Sender: FDA-Public Use
  Company Number: PHHY2014JP034789

PATIENT
  Age: 58 Year
  Sex: Female

DRUGS (4)
  1. CICLOSPORIN [Suspect]
     Indication: IMMUNOSUPPRESSION
     Dosage: 100 MG, PER DAY
  2. PREDNISOLONE [Suspect]
     Indication: IMMUNOSUPPRESSION
     Dosage: 40 MG, PER DAY
     Route: 048
  3. PIRFENIDONE [Suspect]
     Indication: IMMUNOSUPPRESSION
  4. PIRFENIDONE [Suspect]
     Dosage: 1200 MG, PER DAY

REACTIONS (2)
  - Interstitial lung disease [Fatal]
  - Hypoxia [Fatal]
